FAERS Safety Report 17038409 (Version 3)
Quarter: 2020Q1

REPORT INFORMATION
  Report Type: Report from Study
  Country: US (occurrence: US)
  Receive Date: 20191115
  Receipt Date: 20200304
  Transmission Date: 20200409
  Serious: Yes (Hospitalization)
  Sender: FDA-Public Use
  Company Number: US-PFIZER INC-2019481952

PATIENT
  Age: 72 Year
  Sex: Male
  Weight: 112.1 kg

DRUGS (21)
  1. BLINDED PLACEBO [Suspect]
     Active Substance: INVESTIGATIONAL PRODUCT
     Indication: ACUTE MYELOID LEUKAEMIA
     Dosage: ONCE DAILY CONTINUOUS
     Route: 048
     Dates: start: 20190618, end: 20191010
  2. DAUNORUBICIN [Suspect]
     Active Substance: DAUNORUBICIN
     Indication: ACUTE MYELOID LEUKAEMIA
     Dosage: 151 MG, DAILY BY CONTINUOUS INFUSION
     Route: 041
     Dates: start: 20190618, end: 20190620
  3. ULTRAM [Concomitant]
     Active Substance: TRAMADOL HYDROCHLORIDE
     Indication: PAIN
     Dosage: UNK
     Dates: start: 20190930, end: 20190930
  4. LEXAPRO [Concomitant]
     Active Substance: ESCITALOPRAM OXALATE
     Indication: DEPRESSION
     Dosage: 10 MG, DAILY
     Route: 048
     Dates: start: 20180104
  5. BLINDED PLACEBO [Suspect]
     Active Substance: INVESTIGATIONAL PRODUCT
     Dosage: ONCE DAILY CONTINUOUS
     Route: 048
     Dates: start: 20191018
  6. CYTARABINE. [Suspect]
     Active Substance: CYTARABINE
     Dosage: 2460 MG, CYCLIC (OVER 3 HOURS, TWICE DAILY ON DAYS 1, 3, 5) (CONSOLIDATION WITH SINGLE-AGENT)
     Route: 042
     Dates: start: 20190920, end: 20190925
  7. BLINDED GLASDEGIB [Suspect]
     Active Substance: GLASDEGIB
     Dosage: ONCE DAILY CONTINUOUS
     Route: 048
     Dates: start: 20191018
  8. CYTARABINE. [Suspect]
     Active Substance: CYTARABINE
     Indication: ACUTE MYELOID LEUKAEMIA
     Dosage: 251 MG, DAILY BY CONTINUOUS INFUSION, CYTARABINE (INDUCTION)
     Route: 041
     Dates: start: 20190618, end: 20190625
  9. ZOVIRAX [Concomitant]
     Active Substance: ACYCLOVIR
     Indication: ANTIVIRAL PROPHYLAXIS
     Dosage: 400 MG, 2X/DAY
     Route: 048
     Dates: start: 20190618
  10. BLINDED PF-04449913 [Suspect]
     Active Substance: GLASDEGIB
     Dosage: ONCE DAILY CONTINUOUS
     Route: 048
     Dates: start: 20191018
  11. XARELTO [Suspect]
     Active Substance: RIVAROXABAN
     Indication: ATRIAL FIBRILLATION
     Dosage: 20 MG, DAILY
     Route: 048
     Dates: start: 20150212, end: 20191104
  12. WELLBUTRIN XL [Concomitant]
     Active Substance: BUPROPION HYDROCHLORIDE
     Indication: DEPRESSION
     Dosage: 150 MG, DAILY, 24 HOUR TABLET
     Route: 048
     Dates: start: 20170428
  13. VANCOMYCIN [Concomitant]
     Active Substance: VANCOMYCIN
     Indication: DEVICE RELATED INFECTION
     Dosage: 1.5 G, 2X/DAY (EVERY 12 HRS)
     Route: 042
     Dates: start: 20191101
  14. BLINDED PF-04449913 [Suspect]
     Active Substance: GLASDEGIB
     Indication: ACUTE MYELOID LEUKAEMIA
     Dosage: ONCE DAILY CONTINUOUS
     Route: 048
     Dates: start: 20190618, end: 20191010
  15. COZAAR [Concomitant]
     Active Substance: LOSARTAN POTASSIUM
     Indication: HYPERTENSION
     Dosage: UNK
     Dates: start: 20191003
  16. MELATONIN [Concomitant]
     Active Substance: MELATONIN
     Indication: INSOMNIA
     Dosage: UNK
     Dates: start: 20191001
  17. TOPROL XL [Concomitant]
     Active Substance: METOPROLOL SUCCINATE
     Indication: ATRIAL FIBRILLATION
     Dosage: 24 HR TABLET, 50 MG, DAILY
     Route: 048
     Dates: start: 20150212
  18. K-DUR [Concomitant]
     Active Substance: POTASSIUM CHLORIDE
     Indication: HYPOKALAEMIA
     Dosage: POTASSIUM CHLORIDE ER, 40-60 MEQ
     Dates: start: 20191009, end: 20191009
  19. KLOR-CON [Concomitant]
     Active Substance: POTASSIUM CHLORIDE
     Indication: HYPOKALAEMIA
     Dosage: POTASSIUM CHLORIDE ER, 40-60 MEQ
     Dates: start: 20191009, end: 20191009
  20. BLINDED GLASDEGIB [Suspect]
     Active Substance: GLASDEGIB
     Indication: ACUTE MYELOID LEUKAEMIA
     Dosage: ONCE DAILY CONTINUOUS
     Route: 048
     Dates: start: 20190618, end: 20191010
  21. CYTARABINE. [Suspect]
     Active Substance: CYTARABINE
     Indication: ACUTE MYELOID LEUKAEMIA
     Dosage: 2460 MG, CYCLIC (OVER 3 HOURS, TWICE DAILY ON DAYS 1, 3, 5) (CONSOLIDATION WITH SINGLE-AGENT)
     Route: 042
     Dates: start: 20190725, end: 20190730

REACTIONS (3)
  - Orthostatic hypotension [Recovered/Resolved]
  - Fall [Recovered/Resolved]
  - Epistaxis [Recovered/Resolved]

NARRATIVE: CASE EVENT DATE: 20191104
